FAERS Safety Report 5847813-7 (Version None)
Quarter: 2008Q3

REPORT INFORMATION
  Report Type: 
  Country: None (occurrence: None)
  Receive Date: 20080814
  Receipt Date: 20080730
  Transmission Date: 20090109
  Serious: Yes (Other)
  Sender: FDA-Public Use
  Company Number: 8035636

PATIENT
  Sex: Female

DRUGS (2)
  1. KEPPRA [Suspect]
     Dosage: 3000 MG /D
  2. RABIES VACCINE [Suspect]
     Dosage: ONCE

REACTIONS (2)
  - ANIMAL BITE [None]
  - DRUG LEVEL INCREASED [None]
